FAERS Safety Report 6224898-X (Version None)
Quarter: 2009Q2

REPORT INFORMATION
  Report Type: 
  Country: None (occurrence: None)
  Receive Date: 20090612
  Receipt Date: 20090326
  Transmission Date: 20091009
  Serious: No
  Sender: FDA-Public Use
  Company Number: US-ABBOTT-09P-163-0565124-00

PATIENT
  Sex: Female

DRUGS (1)
  1. HUMIRA [Suspect]
     Indication: CROHN'S DISEASE
     Dosage: LOADING DOSE
     Route: 058
     Dates: start: 20090313

REACTIONS (5)
  - PARAESTHESIA [None]
  - PERIPHERAL COLDNESS [None]
  - SENSORY DISTURBANCE [None]
  - STRESS [None]
  - VISUAL IMPAIRMENT [None]
